FAERS Safety Report 7427458-8 (Version None)
Quarter: 2011Q2

REPORT INFORMATION
  Report Type: 
  Country: None (occurrence: None)
  Receive Date: 20110420
  Receipt Date: 20110121
  Transmission Date: 20111010
  Serious: No
  Sender: FDA-Public Use
  Company Number: US-BAYER-2011-008814

PATIENT
  Age: 41 Year
  Sex: Male

DRUGS (1)
  1. EOVIST [Suspect]
     Indication: COMPUTERISED TOMOGRAM
     Dosage: UNK
     Route: 042
     Dates: start: 20110117, end: 20110117

REACTIONS (2)
  - HYPERHIDROSIS [None]
  - NAUSEA [None]
